FAERS Safety Report 17946461 (Version 3)
Quarter: 2020Q4

REPORT INFORMATION
  Report Type: Spontaneous
  Country: US (occurrence: US)
  Receive Date: 20200625
  Receipt Date: 20201103
  Transmission Date: 20210113
  Serious: Yes (Death, Other)
  Sender: FDA-Public Use
  Company Number: US-NAPPMUNDI-USA-2020-0153246

PATIENT
  Age: 63 Year
  Sex: Male

DRUGS (2)
  1. OXYCONTIN [Suspect]
     Active Substance: OXYCODONE HYDROCHLORIDE
     Indication: PAIN
     Dosage: UNKNOWN
     Route: 048
     Dates: start: 1996
  2. OXYCONTIN [Suspect]
     Active Substance: OXYCODONE HYDROCHLORIDE
     Dosage: 80 MG, QID
     Route: 048

REACTIONS (15)
  - Chronic obstructive pulmonary disease [Unknown]
  - Pneumonia [Unknown]
  - Bedridden [Unknown]
  - Dyskinesia [Unknown]
  - Renal disorder [Unknown]
  - Diabetes mellitus [Unknown]
  - Ankle fracture [Unknown]
  - Gout [Unknown]
  - Drug dependence [Unknown]
  - Neuropathy peripheral [Unknown]
  - Withdrawal syndrome [Unknown]
  - General physical health deterioration [Unknown]
  - Overdose [Fatal]
  - Arthritis [Unknown]
  - Sleep disorder [Unknown]

NARRATIVE: CASE EVENT DATE: 1996
